FAERS Safety Report 6796357-7 (Version None)
Quarter: 2010Q2

REPORT INFORMATION
  Report Type: 
  Country: None (occurrence: None)
  Receive Date: 20100622
  Receipt Date: 20100615
  Transmission Date: 20101027
  Serious: Yes (Hospitalization)
  Sender: FDA-Public Use
  Company Number: 616519

PATIENT
  Age: 51 Year
  Sex: Male

DRUGS (4)
  1. PACLITAXEL [Suspect]
     Dosage: 1 CYCLE, INTRAVENOUS
     Route: 042
     Dates: start: 20100419, end: 20100419
  2. (POLARAMINE /00043702/) [Concomitant]
  3. (DECADARN /00016002/) [Concomitant]
  4. RANITIDINE [Concomitant]

REACTIONS (3)
  - BRONCHOSPASM [None]
  - CHEST PAIN [None]
  - TACHYCARDIA [None]
